FAERS Safety Report 18129232 (Version 2)
Quarter: 2020Q3

REPORT INFORMATION
  Report Type: Spontaneous
  Country: LB (occurrence: LB)
  Receive Date: 20200810
  Receipt Date: 20200824
  Transmission Date: 20201103
  Serious: Yes (Death, Other)
  Sender: FDA-Public Use
  Company Number: LB-ASTELLAS-2020US026522

PATIENT
  Age: 89 Year
  Sex: Male

DRUGS (2)
  1. XTANDI [Suspect]
     Active Substance: ENZALUTAMIDE
     Indication: PROSTATE CANCER
     Dosage: 160 MG, ONCE DAILY (4 CAPSULES PER DAY)
     Route: 048
     Dates: start: 201906, end: 202006
  2. DORIXINA [CLONIXIN] [Concomitant]
     Indication: PRODUCT USED FOR UNKNOWN INDICATION
     Dosage: UNK UNK, UNKNOWN FREQ.
     Route: 065

REACTIONS (3)
  - Drug ineffective [Unknown]
  - Malignant neoplasm progression [Fatal]
  - Prostatic specific antigen increased [Not Recovered/Not Resolved]
